FAERS Safety Report 4797323-3 (Version None)
Quarter: 2005Q4

REPORT INFORMATION
  Report Type: 
  Country: None (occurrence: None)
  Receive Date: 20051011
  Receipt Date: 20051011
  Transmission Date: 20060501
  Serious: No
  Sender: FDA-Public Use
  Company Number: None

PATIENT
  Age: 73 Year
  Sex: Male

DRUGS (1)
  1. TERAZOSIN 10MG [Suspect]
     Indication: BENIGN PROSTATIC HYPERPLASIA
     Dosage: TAKE 1 CAPSULE AT BEDTIME
     Dates: start: 20051006, end: 20051008

REACTIONS (3)
  - BENIGN PROSTATIC HYPERPLASIA [None]
  - DYSURIA [None]
  - THERAPEUTIC RESPONSE UNEXPECTED WITH DRUG SUBSTITUTION [None]
